FAERS Safety Report 21469926 (Version 2)
Quarter: 2023Q1

REPORT INFORMATION
  Report Type: Other
  Country: IN (occurrence: None)
  Receive Date: 20221018
  Receipt Date: 20230219
  Transmission Date: 20230418
  Serious: Yes (Other)
  Sender: FDA-Public Use
  Company Number: IN-ROCHE-3183341

PATIENT
  Age: 57 Year
  Sex: Female

DRUGS (1)
  1. TECENTRIQ [Suspect]
     Active Substance: ATEZOLIZUMAB
     Indication: Breast cancer
     Route: 041
     Dates: start: 20220713

REACTIONS (6)
  - Off label use [Unknown]
  - Spinal operation [Unknown]
  - Spinal compression fracture [Unknown]
  - Tumour compression [Unknown]
  - Pathological fracture [Unknown]
  - Disease progression [Unknown]

NARRATIVE: CASE EVENT DATE: 20220920
